FAERS Safety Report 24572194 (Version 1)
Quarter: 2024Q4

REPORT INFORMATION
  Report Type: Spontaneous
  Country: PE (occurrence: PE)
  Receive Date: 20241101
  Receipt Date: 20241101
  Transmission Date: 20250115
  Serious: Yes (Life-Threatening, Hospitalization, Other)
  Sender: PFIZER
  Company Number: PE-PFIZER INC-PV202400140847

PATIENT
  Age: 47 Year
  Sex: Female

DRUGS (7)
  1. MEROPENEM [Suspect]
     Active Substance: MEROPENEM
     Indication: Bacterial infection
     Dosage: 500MG EVERY 24 HOURS
  2. MEROPENEM [Suspect]
     Active Substance: MEROPENEM
     Indication: Emphysematous pyelonephritis
  3. MEROPENEM [Suspect]
     Active Substance: MEROPENEM
     Indication: Nephrolithiasis
  4. VANCOMYCIN [Suspect]
     Active Substance: VANCOMYCIN
     Indication: Bacterial infection
     Dosage: 500 MG EVERY 48 HOURS
  5. VANCOMYCIN [Suspect]
     Active Substance: VANCOMYCIN
     Indication: Emphysematous pyelonephritis
  6. VANCOMYCIN [Suspect]
     Active Substance: VANCOMYCIN
     Indication: Nephrolithiasis
  7. NOREPINEPHRINE [Concomitant]
     Active Substance: NOREPINEPHRINE\NOREPINEPHRINE BITARTRATE
     Indication: Septic shock
     Dosage: 1 UG/HOUR/MIN

REACTIONS (1)
  - Drug ineffective [Recovering/Resolving]
